FAERS Safety Report 8972137 (Version 1)
Quarter: 2012Q4

REPORT INFORMATION
  Report Type: 
  Country: US (occurrence: US)
  Receive Date: 20121219
  Receipt Date: 20121219
  Transmission Date: 20130627
  Serious: No
  Sender: FDA-Public Use
  Company Number: US-BAYER-2012-124414

PATIENT
  Sex: Female
  Weight: 70.3 kg

DRUGS (21)
  1. BETASERON [Suspect]
     Dosage: 0.3 mg, QOD
     Route: 058
  2. CALTRATE [Concomitant]
  3. SINGULAIR [Concomitant]
     Dosage: 10 mg, UNK
  4. AMLODIPINE [Concomitant]
     Dosage: 2.5 mg, UNK
  5. ALPRAZOLAM [Concomitant]
     Dosage: 1 mg/ml, UNK
  6. PROVENTIL [Concomitant]
     Dosage: 90 ?g, UNK
  7. ALLEGRA [Concomitant]
     Dosage: 180 mg, UNK
  8. BACLOFEN [Concomitant]
     Dosage: 10 mg, UNK
  9. ADVAIR [Concomitant]
  10. VITAMIN E [Concomitant]
     Dosage: 1000 iu, UNK
  11. PREVACID [Concomitant]
     Dosage: 30 mg, STB
  12. ZANTAC [Concomitant]
  13. ATROVENT [Concomitant]
     Dosage: 17 ?g, UNK
  14. TURMERIC [Concomitant]
     Dosage: 450 mg, UNK
  15. COCONUT OIL [Concomitant]
     Dosage: 1000 mg, UNK
  16. VITAMIN B12 [Concomitant]
     Dosage: 1000 ?g, UNK
  17. FISH OIL [Concomitant]
  18. VITAMIN D [Concomitant]
     Dosage: 1000 iu, UNK
  19. XOPENEX [Concomitant]
  20. FLAXSEED OIL [Concomitant]
  21. PULMICORT [Concomitant]
     Dosage: 200 ?g, UNK

REACTIONS (6)
  - Sinusitis [Unknown]
  - Fatigue [Unknown]
  - Muscle spasms [Unknown]
  - Injection site erythema [Unknown]
  - Back pain [Unknown]
  - Neck pain [Unknown]
